FAERS Safety Report 4515303-X (Version None)
Quarter: 2004Q4

REPORT INFORMATION
  Report Type: 
  Country: None (occurrence: None)
  Receive Date: 20041201
  Receipt Date: 20041124
  Transmission Date: 20050328
  Serious: Yes (Hospitalization)
  Sender: FDA-Public Use
  Company Number: US-BRISTOL-MYERS SQUIBB COMPANY-12774832

PATIENT
  Age: 65 Year
  Sex: Male
  Weight: 78 kg

DRUGS (4)
  1. CETUXIMAB [Suspect]
     Indication: COLORECTAL CANCER METASTATIC
     Dosage: INITIATED 30-SEP-04. 400 MG/M2 ON DAY 1, 250 MG/M2 WEEKLY THEREAFTER. TOTAL DOSE ADMIN. 2720MG.
     Route: 042
     Dates: start: 20041027, end: 20041027
  2. IRINOTECAN HCL [Suspect]
     Indication: COLORECTAL CANCER METASTATIC
     Dosage: INITIATED ON 30-SEP-04. TOTAL DOSE ADMINISTERED THIS COURSE=1053MG.
     Route: 042
     Dates: start: 20041027, end: 20041027
  3. LEUCOVORIN CALCIUM [Suspect]
     Indication: COLORECTAL CANCER METASTATIC
     Dosage: INITIATED ON 30-SEP-04. TOTAL DOSE ADMINISTERED THIS COURSE= 2340 MG.
     Route: 042
     Dates: start: 20041027, end: 20041027
  4. FLUOROURACIL [Suspect]
     Indication: COLORECTAL CANCER METASTATIC
     Dosage: INITIATED ON 30-SEP-04. 400 BOLUS, THEN 2400 Q2WKS. TOTAL DOSE ADMINISTERED THIS COURSE=10140MG.
     Route: 042
     Dates: start: 20041027, end: 20041027

REACTIONS (9)
  - DIARRHOEA [None]
  - HEADACHE [None]
  - INFARCTION [None]
  - LACUNAR INFARCTION [None]
  - PERIVENTRICULAR LEUKOMALACIA [None]
  - PHOTOPSIA [None]
  - VIIITH NERVE LESION [None]
  - VISION BLURRED [None]
  - VITREOUS FLOATERS [None]
